FAERS Safety Report 12311096 (Version 1)
Quarter: 2016Q2

REPORT INFORMATION
  Report Type: Other
  Country: IN (occurrence: IN)
  Receive Date: 20160427
  Receipt Date: 20160427
  Transmission Date: 20160815
  Serious: Yes (Hospitalization, Other)
  Sender: FDA-Public Use
  Company Number: IN-ENDO PHARMACEUTICALS INC-2016-002696

PATIENT
  Age: 52 Year
  Sex: Female

DRUGS (1)
  1. RHEUMATREX [Suspect]
     Active Substance: METHOTREXATE SODIUM
     Indication: RHEUMATOID ARTHRITIS
     Route: 065

REACTIONS (4)
  - Pancytopenia [Recovered/Resolved]
  - Angioedema [Recovered/Resolved]
  - Accidental overdose [Recovered/Resolved]
  - Stevens-Johnson syndrome [Recovered/Resolved]
